FAERS Safety Report 7197842-9 (Version None)
Quarter: 2010Q4

REPORT INFORMATION
  Report Type: 
  Country: None (occurrence: None)
  Receive Date: 20101227
  Receipt Date: 20101221
  Transmission Date: 20110411
  Serious: Yes (Other)
  Sender: FDA-Public Use
  Company Number: TR-SANOFI-AVENTIS-2010SA077531

PATIENT

DRUGS (1)
  1. CLEXANE [Suspect]
     Route: 058

REACTIONS (3)
  - HALLUCINATION [None]
  - PANIC ATTACK [None]
  - SPEECH DISORDER [None]
